FAERS Safety Report 10959342 (Version 1)
Quarter: 2015Q1

REPORT INFORMATION
  Report Type: Spontaneous
  Country: US (occurrence: US)
  Receive Date: 20150327
  Receipt Date: 20150327
  Transmission Date: 20150721
  Serious: Yes (Death)
  Sender: FDA-Public Use
  Company Number: US-CIPLA LTD.-2015US02350

PATIENT

DRUGS (7)
  1. SIMVASTATIN. [Suspect]
     Active Substance: SIMVASTATIN
  2. AMLODIPINE [Suspect]
     Active Substance: AMLODIPINE BESYLATE
  3. ETHANOL [Suspect]
     Active Substance: ALCOHOL
  4. DOXEPIN [Suspect]
     Active Substance: DOXEPIN
  5. CARVEDILOL. [Suspect]
     Active Substance: CARVEDILOL
  6. SERTRALINE [Suspect]
     Active Substance: SERTRALINE HYDROCHLORIDE
  7. BUPROPION [Suspect]
     Active Substance: BUPROPION

REACTIONS (1)
  - Completed suicide [Fatal]
